FAERS Safety Report 4823299-6 (Version None)
Quarter: 2005Q4

REPORT INFORMATION
  Report Type: 
  Country: None (occurrence: None)
  Receive Date: 20051109
  Receipt Date: 20051107
  Transmission Date: 20060501
  Serious: Yes (Life-Threatening, Hospitalization)
  Sender: FDA-Public Use
  Company Number: AU-BOEHRINGER INGELHEIM PHARMACEUTICALS, INC.-2005-BP-19270AU

PATIENT
  Age: 85 Year
  Sex: Female

DRUGS (5)
  1. MOBIC [Suspect]
     Route: 048
     Dates: start: 20040715, end: 20040913
  2. ASPIRIN [Concomitant]
  3. METOPROLOL TARTRATE [Concomitant]
  4. ISOSORBIDE DINITRATE [Concomitant]
  5. ISOSORBIDE MONONITRATE [Concomitant]

REACTIONS (2)
  - ACUTE PULMONARY OEDEMA [None]
  - DYSPNOEA EXACERBATED [None]
